FAERS Safety Report 14357901 (Version 1)
Quarter: 2018Q1

REPORT INFORMATION
  Report Type: Spontaneous
  Country: NL (occurrence: NL)
  Receive Date: 20180105
  Receipt Date: 20180105
  Transmission Date: 20180509
  Serious: Yes (Hospitalization, Other)
  Sender: FDA-Public Use
  Company Number: NL-GLAXOSMITHKLINE-NL2018000046

PATIENT
  Age: 66 Year
  Sex: Female
  Weight: 90 kg

DRUGS (1)
  1. CUTIVATE [Suspect]
     Active Substance: FLUTICASONE PROPIONATE
     Indication: LICHEN SCLEROSUS
     Dosage: 1 DF, WE, 1 X PER WEEK (0.5MG/GM)
     Route: 003
     Dates: start: 20000101

REACTIONS (2)
  - Myocarditis [Unknown]
  - Systemic lupus erythematosus [Unknown]

NARRATIVE: CASE EVENT DATE: 20170430
